FAERS Safety Report 9596159 (Version 2)
Quarter: 2013Q4

REPORT INFORMATION
  Report Type: Spontaneous
  Country: NO (occurrence: NO)
  Receive Date: 20131004
  Receipt Date: 20131004
  Transmission Date: 20140711
  Serious: Yes (Other)
  Sender: FDA-Public Use
  Company Number: NO-WATSON-2009-12665

PATIENT
  Sex: Female

DRUGS (3)
  1. LAMOTRIGINE (UNKNOWN) [Suspect]
     Indication: EPILEPSY
     Dosage: 300 MG, DAILY
     Route: 065
  2. TOPIRAMATE (UNKNOWN) [Suspect]
     Indication: EPILEPSY
     Dosage: 350 MG, DAILY
     Route: 048
  3. PRIMIDONE (WATSON LABORATORIES) [Suspect]
     Indication: PRODUCT USED FOR UNKNOWN INDICATION
     Dosage: DOSAGE FORM: UNKNOWN
     Route: 065

REACTIONS (3)
  - Psychotic disorder [Unknown]
  - Grand mal convulsion [Unknown]
  - Exposure during pregnancy [Recovered/Resolved]
